FAERS Safety Report 7183043-7 (Version None)
Quarter: 2010Q4

REPORT INFORMATION
  Report Type: 
  Country: None (occurrence: None)
  Receive Date: 20101222
  Receipt Date: 20101214
  Transmission Date: 20110411
  Serious: Yes (Hospitalization)
  Sender: FDA-Public Use
  Company Number: JP-ASTELLAS-2010JP007444

PATIENT
  Age: 38 Year
  Sex: Female

DRUGS (9)
  1. PROGRAF [Suspect]
     Dosage: 1 MG, UID/QD
     Route: 048
     Dates: start: 20081008, end: 20100512
  2. PROGRAF [Suspect]
     Dosage: UNK
     Route: 048
  3. ENBREL [Suspect]
     Indication: RHEUMATOID ARTHRITIS
     Dosage: 25 MG, WEEKLY
     Route: 058
     Dates: start: 20080509, end: 20080703
  4. ENBREL [Suspect]
     Dosage: 25 MG, WEEKLY
     Route: 058
     Dates: start: 20080710, end: 20100505
  5. DEPAS [Concomitant]
     Dosage: UNK
     Route: 065
     Dates: end: 20100512
  6. PREDNISOLONE [Concomitant]
     Route: 065
  7. PREDNISOLONE [Concomitant]
     Dosage: 1 MG, UNKNOWN/D
     Route: 065
  8. PREDNISOLONE [Concomitant]
     Dosage: 5 MG, UNKNOWN/D
     Route: 065
     Dates: start: 20100520
  9. ROCALTROL [Concomitant]
     Dosage: UNK
     Route: 065
     Dates: end: 20100512

REACTIONS (1)
  - HAEMOPTYSIS [None]
